FAERS Safety Report 5646904-3 (Version None)
Quarter: 2008Q1

REPORT INFORMATION
  Report Type: 
  Country: None (occurrence: None)
  Receive Date: 20080303
  Receipt Date: 20080225
  Transmission Date: 20080703
  Serious: Yes (Death, Life-Threatening, Hospitalization)
  Sender: FDA-Public Use
  Company Number: FR-ELI_LILLY_AND_COMPANY-FR200802005724

PATIENT
  Sex: Male

DRUGS (6)
  1. GEMZAR [Suspect]
     Indication: HEPATIC NEOPLASM MALIGNANT NON-RESECTABLE
     Dosage: UNK, UNKNOWN
     Route: 042
  2. OXALIPLATIN [Concomitant]
     Indication: HEPATIC NEOPLASM MALIGNANT NON-RESECTABLE
     Dosage: UNK, UNKNOWN
     Route: 042
  3. NEORAL [Concomitant]
     Dosage: UNK, UNKNOWN
     Route: 048
  4. MEDIATENSYL [Concomitant]
     Dosage: UNK, UNKNOWN
     Route: 048
  5. MOPRAL [Concomitant]
     Dosage: 20 MG, UNKNOWN
     Route: 048
  6. TENORMIN [Concomitant]
     Dosage: UNK, UNKNOWN
     Route: 048

REACTIONS (5)
  - DEATH [None]
  - DEEP VEIN THROMBOSIS [None]
  - RENAL FAILURE ACUTE [None]
  - SEPSIS [None]
  - SUBILEUS [None]
